FAERS Safety Report 6165870-8 (Version None)
Quarter: 2009Q2

REPORT INFORMATION
  Report Type: 
  Country: None (occurrence: None)
  Receive Date: 20090422
  Receipt Date: 20090407
  Transmission Date: 20091009
  Serious: Yes (Other)
  Sender: FDA-Public Use
  Company Number: 2009S1006259

PATIENT
  Sex: Female
  Weight: 3 kg

DRUGS (1)
  1. ALBUTEROL [Suspect]
     Dosage: 10 MG;ONCE;TRANSPLACENTAL
     Route: 064
     Dates: start: 20081117, end: 20081117

REACTIONS (4)
  - CAESAREAN SECTION [None]
  - FOETAL DISTRESS SYNDROME [None]
  - MATERNAL DRUGS AFFECTING FOETUS [None]
  - TACHYCARDIA FOETAL [None]
